FAERS Safety Report 21101034 (Version 1)
Quarter: 2022Q3

REPORT INFORMATION
  Report Type: Spontaneous
  Country: DE (occurrence: DE)
  Receive Date: 20220719
  Receipt Date: 20220719
  Transmission Date: 20221026
  Serious: No
  Sender: FDA-Public Use
  Company Number: None

PATIENT
  Age: 28 Year
  Sex: Female
  Weight: 62 kg

DRUGS (1)
  1. PAXLOVID [Suspect]
     Active Substance: NIRMATRELVIR\RITONAVIR
     Indication: COVID-19 treatment
     Dosage: TWICE DAILY RECOMMENDED DOSE, 2X/DAY
     Route: 048
     Dates: start: 20220705, end: 20220707

REACTIONS (6)
  - Headache [Recovering/Resolving]
  - Dysgeusia [Recovering/Resolving]
  - Arthralgia [Recovering/Resolving]
  - Sacral pain [Recovering/Resolving]
  - Toothache [Recovering/Resolving]
  - Incorrect product administration duration [Unknown]

NARRATIVE: CASE EVENT DATE: 20220705
